FAERS Safety Report 4601710-3 (Version None)
Quarter: 2005Q1

REPORT INFORMATION
  Report Type: 
  Country: None (occurrence: None)
  Receive Date: 20050131
  Receipt Date: 20041217
  Transmission Date: 20050727
  Serious: No
  Sender: FDA-Public Use
  Company Number: 200419668US

PATIENT
  Age: 41 Year
  Sex: Male

DRUGS (4)
  1. TELITHROMYCIN (KETEK) TABLETS [Suspect]
     Indication: SINUSITIS
     Dosage: 800 MG QD PO
     Route: 048
  2. FLUTICASONE PROPIONATE (FLONASE) [Concomitant]
  3. ASPIRIN [Concomitant]
  4. TYLENOL [Concomitant]

REACTIONS (2)
  - EYE MOVEMENT DISORDER [None]
  - LACRIMATION INCREASED [None]
